FAERS Safety Report 5219029-9 (Version None)
Quarter: 2007Q1

REPORT INFORMATION
  Report Type: 
  Country: None (occurrence: None)
  Receive Date: 20070125
  Receipt Date: 20070117
  Transmission Date: 20070707
  Serious: Yes (Other)
  Sender: FDA-Public Use
  Company Number: HU-ELI_LILLY_AND_COMPANY-HU200701003355

PATIENT
  Sex: Male

DRUGS (6)
  1. HUMULIN R [Suspect]
     Indication: DIABETES MELLITUS
     Dosage: 11 IU, EACH MORNING
     Route: 058
     Dates: start: 20061215
  2. HUMULIN R [Suspect]
     Dosage: 8 IU, DAILY (1/D)
     Route: 058
  3. HUMULIN R [Suspect]
     Dosage: 8 IU, EACH EVENING
     Route: 058
  4. HUMULIN N [Suspect]
     Indication: DIABETES MELLITUS
     Dosage: 10 IU, DAILY (1/D)
     Route: 058
     Dates: start: 20061215
  5. ALPRAZOLAM [Concomitant]
     Indication: DEPRESSION
     Route: 048
  6. ENALAPRIL MALEATE [Concomitant]
     Indication: HYPERTENSION
     Route: 048

REACTIONS (1)
  - RASH MACULO-PAPULAR [None]
